FAERS Safety Report 5677369-3 (Version None)
Quarter: 2008Q1

REPORT INFORMATION
  Report Type: 
  Country: None (occurrence: None)
  Receive Date: 20080324
  Receipt Date: 20080312
  Transmission Date: 20080703
  Serious: Yes (Hospitalization, Other)
  Sender: FDA-Public Use
  Company Number: US-PFIZER INC-2008023167

PATIENT
  Sex: Female

DRUGS (2)
  1. XANAX [Suspect]
  2. AMBIEN [Interacting]

REACTIONS (2)
  - DRUG INTERACTION [None]
  - PHYSICAL ASSAULT [None]
